FAERS Safety Report 7603176-8 (Version None)
Quarter: 2011Q3

REPORT INFORMATION
  Report Type: 
  Country: None (occurrence: None)
  Receive Date: 20110712
  Receipt Date: 20110707
  Transmission Date: 20111222
  Serious: Yes (Death, Life-Threatening, Hospitalization)
  Sender: FDA-Public Use
  Company Number: JP-SANOFI-AVENTIS-2011SA036901

PATIENT
  Age: 76 Year
  Sex: Male
  Weight: 77.9 kg

DRUGS (4)
  1. NAPROXEN [Concomitant]
     Indication: PYREXIA
  2. DEXAMETHASONE [Concomitant]
  3. DOCETAXEL [Suspect]
     Indication: ADENOSQUAMOUS CELL LUNG CANCER
     Route: 042
     Dates: start: 20100621
  4. PREDNISOLONE [Concomitant]
     Indication: PYREXIA

REACTIONS (10)
  - OEDEMA [None]
  - VASCULITIS [None]
  - GLOMERULONEPHRITIS RAPIDLY PROGRESSIVE [None]
  - MICROSCOPIC POLYANGIITIS [None]
  - BLOOD CREATININE INCREASED [None]
  - COMA [None]
  - RENAL FAILURE [None]
  - ANURIA [None]
  - HENOCH-SCHONLEIN PURPURA [None]
  - GASTROINTESTINAL HAEMORRHAGE [None]
